FAERS Safety Report 12085781 (Version 5)
Quarter: 2016Q3

REPORT INFORMATION
  Report Type: Spontaneous
  Country: JP (occurrence: JP)
  Receive Date: 20160217
  Receipt Date: 20160815
  Transmission Date: 20161109
  Serious: Yes (Hospitalization, Other)
  Sender: FDA-Public Use
  Company Number: JP-B.I. PHARMACEUTICALS,INC./RIDGEFIELD-2016-BI-07123NB

PATIENT
  Age: 81 Year
  Sex: Female
  Weight: 49 kg

DRUGS (7)
  1. AMLODIPINE [Concomitant]
     Active Substance: AMLODIPINE BESYLATE
     Indication: PRODUCT USED FOR UNKNOWN INDICATION
     Dosage: 5 MG
     Route: 048
  2. PARIET [Concomitant]
     Active Substance: RABEPRAZOLE SODIUM
     Indication: PRODUCT USED FOR UNKNOWN INDICATION
     Dosage: 10 MG
     Route: 048
  3. PRAZAXA [Suspect]
     Active Substance: DABIGATRAN ETEXILATE MESYLATE
     Indication: PRODUCT USED FOR UNKNOWN INDICATION
     Dosage: 150 MG
     Route: 048
     Dates: end: 20160202
  4. TASIGNA [Concomitant]
     Active Substance: NILOTINIB
     Indication: PRODUCT USED FOR UNKNOWN INDICATION
     Dosage: 600 MG
     Route: 048
  5. PRAZAXA [Suspect]
     Active Substance: DABIGATRAN ETEXILATE MESYLATE
     Dosage: 75 MG
     Route: 048
     Dates: start: 20160205
  6. EDARAVONE [Concomitant]
     Active Substance: EDARAVONE
     Indication: CEREBRAL INFARCTION
     Dosage: 60 MG
     Route: 065
     Dates: start: 20160204, end: 20160215
  7. PRAZAXA [Suspect]
     Active Substance: DABIGATRAN ETEXILATE MESYLATE
     Dosage: 150 MG
     Route: 048
     Dates: start: 20160204, end: 20160204

REACTIONS (4)
  - Haematochezia [Recovered/Resolved]
  - Cerebral infarction [Not Recovered/Not Resolved]
  - Haematuria [Recovered/Resolved]
  - Tibia fracture [Not Recovered/Not Resolved]

NARRATIVE: CASE EVENT DATE: 20120410
